FAERS Safety Report 9079531 (Version 1)
Quarter: 2013Q1

REPORT INFORMATION
  Report Type: Spontaneous
  Country: RO (occurrence: RO)
  Receive Date: 20130215
  Receipt Date: 20130215
  Transmission Date: 20140127
  Serious: Yes (Hospitalization)
  Sender: FDA-Public Use
  Company Number: RO-PFIZER INC-2013048477

PATIENT
  Age: 73 Year
  Sex: Male
  Weight: 78 kg

DRUGS (5)
  1. SORTIS [Suspect]
     Indication: HYPERCHOLESTEROLAEMIA
     Dosage: 80 MG, UNK
     Route: 048
     Dates: end: 20130128
  2. BISOPROLOL [Concomitant]
     Dosage: 5 MG, TWICE DAILY
     Route: 048
  3. NORVASC [Concomitant]
     Dosage: 10 MG, TWICE DAILY
     Route: 048
  4. DIOVAN (VALSARTAN) [Concomitant]
     Dosage: 80 MG, TWICE DAILY
     Route: 048
  5. MOXONIDINE [Concomitant]
     Dosage: 0.4 MG, UNK
     Route: 048

REACTIONS (17)
  - Hepatic pain [Recovered/Resolved]
  - Myalgia [Recovered/Resolved]
  - Fatigue [Recovered/Resolved]
  - Vertigo [Recovered/Resolved]
  - Alanine aminotransferase increased [Unknown]
  - Aspartate aminotransferase increased [Unknown]
  - Blood alkaline phosphatase increased [Unknown]
  - Blood cholesterol increased [Unknown]
  - Blood creatinine increased [Unknown]
  - Blood glucose increased [Unknown]
  - Blood urea increased [Unknown]
  - Blood uric acid increased [Unknown]
  - Haematocrit decreased [Unknown]
  - Haemoglobin decreased [Unknown]
  - Mean cell volume abnormal [Recovered/Resolved]
  - Prothrombin time prolonged [Unknown]
  - Red blood cell count decreased [Unknown]
